FAERS Safety Report 22533336 (Version 1)
Quarter: 2023Q2

REPORT INFORMATION
  Report Type: Spontaneous
  Country: BR (occurrence: BR)
  Receive Date: 20230608
  Receipt Date: 20230608
  Transmission Date: 20230722
  Serious: Yes (Other)
  Sender: FDA-Public Use
  Company Number: BR-BEH-2023159535

PATIENT
  Age: 48 Year
  Sex: Female
  Weight: 46.3 kg

DRUGS (1)
  1. PRIVIGEN [Suspect]
     Active Substance: HUMAN IMMUNOGLOBULIN G
     Indication: Myasthenia gravis
     Dosage: 30 GRAM, OD
     Route: 042
     Dates: start: 20230228, end: 20230228

REACTIONS (6)
  - Headache [Recovered/Resolved]
  - Tremor [Recovered/Resolved]
  - Odynophagia [Recovered/Resolved]
  - Throat tightness [Recovered/Resolved]
  - No adverse event [Unknown]
  - Off label use [Unknown]

NARRATIVE: CASE EVENT DATE: 20230228
